FAERS Safety Report 6822741-9 (Version None)
Quarter: 2010Q3

REPORT INFORMATION
  Report Type: 
  Country: None (occurrence: None)
  Receive Date: 20100708
  Receipt Date: 20100630
  Transmission Date: 20110219
  Serious: Yes (Hospitalization)
  Sender: FDA-Public Use
  Company Number: CH-ROCHE-711602

PATIENT
  Sex: Female
  Weight: 68 kg

DRUGS (2)
  1. ACTEMRA [Suspect]
     Indication: RHEUMATOID ARTHRITIS
     Route: 042
     Dates: start: 20091201
  2. ARAVA [Concomitant]
     Dosage: DOSE: 20 DAILY
     Route: 048

REACTIONS (2)
  - ERYSIPELAS [None]
  - EXTREMITY NECROSIS [None]
